FAERS Safety Report 5074760-3 (Version None)
Quarter: 2006Q3

REPORT INFORMATION
  Report Type: 
  Country: None (occurrence: None)
  Receive Date: 20060807
  Receipt Date: 20060728
  Transmission Date: 20061208
  Serious: Yes (Other)
  Sender: FDA-Public Use
  Company Number: 14466

PATIENT
  Age: 53 Year
  Sex: Female

DRUGS (5)
  1. CARBOPLATIN [Suspect]
     Indication: OVARIAN CANCER
     Dosage: 730 MG Q21DAYS IV
     Route: 042
     Dates: start: 20060601, end: 20060620
  2. PHENERGAN HCL [Concomitant]
  3. RANITIDINE [Concomitant]
  4. DEXAMETHASONE [Concomitant]
  5. DOLASETRON [Concomitant]

REACTIONS (1)
  - ANAPHYLACTIC REACTION [None]
